FAERS Safety Report 7893460-5 (Version None)
Quarter: 2011Q4

REPORT INFORMATION
  Report Type: 
  Country: None (occurrence: None)
  Receive Date: 20111104
  Receipt Date: 20111024
  Transmission Date: 20120403
  Serious: Yes (Hospitalization)
  Sender: FDA-Public Use
  Company Number: US-ELI_LILLY_AND_COMPANY-US201109006513

PATIENT
  Sex: Female
  Weight: 61.678 kg

DRUGS (41)
  1. ACETAMINOPHEN AND HYDROCODONE BITARTRATE [Concomitant]
     Dosage: UNK
     Dates: start: 20110110
  2. ACYCLOVIR [Concomitant]
     Dosage: 400 MG, UNK
     Dates: start: 20110412
  3. ZYPREXA [Concomitant]
     Dosage: 10 MG, UNK
     Dates: start: 20110407
  4. EFFEXOR XR [Concomitant]
     Dosage: 75 MG, QD
     Dates: start: 20110101
  5. FORTEO [Suspect]
     Indication: SENILE OSTEOPOROSIS
     Dosage: 20 UG, QD
     Route: 058
  6. VENLAFAXINE HYDROCHLORIDE [Concomitant]
     Dosage: 75 MG, QD
     Dates: start: 20110304
  7. VENLAFAXINE HYDROCHLORIDE [Concomitant]
     Dosage: 75 MG, QD
     Dates: start: 20110505
  8. OXYCODONE AND ACETAMINOPHEN [Concomitant]
     Dosage: UNK
     Dates: start: 20110217
  9. OXYCODONE AND ACETAMINOPHEN [Concomitant]
     Dosage: UNK
     Dates: start: 20110316
  10. OXYCODONE AND ACETAMINOPHEN [Concomitant]
     Dosage: UNK
     Dates: start: 20110502
  11. LEVOTHYROXINE SODIUM [Concomitant]
     Dosage: 112 UG, UNK
     Dates: start: 20110330
  12. OMEPRAZOLE [Concomitant]
     Dosage: 10 MG, UNK
     Dates: start: 20110419
  13. DIPHENOXYLATE HCL + ATROPINE SULFATE [Concomitant]
     Dosage: UNK
     Dates: start: 20110419
  14. LEVAQUIN [Concomitant]
     Dosage: 500 MG, UNK
     Dates: start: 20100913
  15. CIPROFLOXACIN HCL [Concomitant]
     Dosage: 500 MG, UNK
     Dates: start: 20110412
  16. LEVOTHYROXINE SODIUM [Concomitant]
     Dosage: 112 UG, UNK
     Dates: start: 20110126
  17. LEVOTHYROXINE SODIUM [Concomitant]
     Dosage: 112 UG, UNK
     Dates: start: 20110301
  18. EFFEXOR XR [Concomitant]
     Dosage: 75 MG, QD
     Dates: start: 20101201
  19. ACETAMINOPHEN AND HYDROCODONE BITARTRATE [Concomitant]
     Dosage: UNK
     Dates: start: 20101011
  20. CIPROFLOXACIN HCL [Concomitant]
     Dosage: 500 MG, UNK
     Dates: start: 20110512
  21. LEVOTHYROXINE SODIUM [Concomitant]
     Dosage: 112 UG, UNK
     Dates: start: 20101230
  22. NITROFURANTOIN MONOHYDRATE/MACROCRYSTALS [Concomitant]
     Dosage: 100 MG, UNK
     Dates: start: 20101221
  23. ACETAMINOPHEN AND HYDROCODONE BITARTRATE [Concomitant]
     Dosage: UNK
     Dates: start: 20101110
  24. ACETAMINOPHEN AND HYDROCODONE BITARTRATE [Concomitant]
     Dosage: UNK
     Dates: start: 20110304
  25. NEXIUM [Concomitant]
     Dosage: 40 MG, UNK
     Dates: start: 20110518
  26. CIPROFLOXACIN HCL [Concomitant]
     Dosage: 500 MG, UNK
     Dates: start: 20110318
  27. PROCHLORPERAZINE MALEATE [Concomitant]
     Dosage: 5 MG, UNK
     Dates: start: 20110419
  28. ACETAMINOPHEN AND HYDROCODONE BITARTRATE [Concomitant]
     Dosage: UNK
     Dates: start: 20110329
  29. VENLAFAXINE HYDROCHLORIDE [Concomitant]
     Dosage: 75 MG, QD
     Dates: start: 20110130
  30. ACETAMINOPHEN AND HYDROCODONE BITARTRATE [Concomitant]
     Dosage: UNK
     Dates: start: 20101210
  31. ACETAMINOPHEN AND HYDROCODONE BITARTRATE [Concomitant]
     Dosage: UNK
     Dates: start: 20110208
  32. TEMAZEPAM [Concomitant]
     Dosage: 30 MG, UNK
     Dates: start: 20110505
  33. VENLAFAXINE HYDROCHLORIDE [Concomitant]
     Dosage: 75 MG, QD
     Dates: start: 20110404
  34. LEVOTHYROXINE SODIUM [Concomitant]
     Dosage: 112 UG, UNK
     Dates: start: 20110429
  35. ALPRAZOLAM [Concomitant]
     Dosage: 0.25 MG, UNK
  36. ACETAMINOPHEN AND HYDROCODONE BITARTRATE [Concomitant]
     Dosage: UNK
     Dates: start: 20110426
  37. ACETAMINOPHEN AND HYDROCODONE BITARTRATE [Concomitant]
     Dosage: UNK
     Dates: start: 20110524
  38. SERTRALINE HYDROCHLORIDE [Concomitant]
     Dosage: 100 MG, UNK
     Dates: start: 20110429
  39. CRESTOR [Concomitant]
     Dosage: 5 MG, UNK
     Dates: start: 20110419
  40. EFFEXOR XR [Concomitant]
     Dosage: 75 MG, QD
     Dates: start: 20101002
  41. EFFEXOR XR [Concomitant]
     Dosage: 75 MG, QD
     Dates: start: 20101101

REACTIONS (3)
  - DYSARTHRIA [None]
  - CONFUSIONAL STATE [None]
  - LETHARGY [None]
